FAERS Safety Report 5720929-1 (Version None)
Quarter: 2008Q2

REPORT INFORMATION
  Report Type: 
  Country: None (occurrence: None)
  Receive Date: 20080424
  Receipt Date: 20080421
  Transmission Date: 20081010
  Serious: Yes (Death)
  Sender: FDA-Public Use
  Company Number: CLOF-1000149

PATIENT
  Age: 47 Year
  Sex: Male
  Weight: 62 kg

DRUGS (2)
  1. CLOLAR [Suspect]
     Indication: ACUTE LYMPHOCYTIC LEUKAEMIA
     Dosage: 40 MG/M2, QDX5, INTRAVENOUS
     Route: 042
     Dates: start: 20080327, end: 20080331
  2. CYTARABINE [Suspect]
     Indication: ACUTE LYMPHOCYTIC LEUKAEMIA
     Dosage: 1 G/M2, QDX5, INTRAVENOUS
     Route: 042
     Dates: start: 20080327, end: 20080331

REACTIONS (10)
  - DIALYSIS [None]
  - ENTEROCOCCAL INFECTION [None]
  - HYPOXIA [None]
  - NEUTROPENIC INFECTION [None]
  - REFUSAL OF TREATMENT BY RELATIVE [None]
  - RENAL FAILURE [None]
  - RESPIRATORY FAILURE [None]
  - SEPSIS [None]
  - STAPHYLOCOCCAL INFECTION [None]
  - STREPTOCOCCAL INFECTION [None]
